FAERS Safety Report 9092239 (Version 1)
Quarter: 2013Q1

REPORT INFORMATION
  Report Type: Report from Study
  Country: US (occurrence: US)
  Receive Date: 20130131
  Receipt Date: 20130131
  Transmission Date: 20140127
  Serious: No
  Sender: FDA-Public Use
  Company Number: US-ABBOTT-12P-163-0990712-00

PATIENT
  Sex: Male
  Weight: 83.54 kg

DRUGS (3)
  1. HUMIRA [Suspect]
     Indication: PSORIASIS
     Dates: start: 20120603, end: 201209
  2. OMEPRAZOLE (NON-ABBOTT) [Concomitant]
  3. TYLENOL (NON-ABBOTT) [Concomitant]
     Indication: PRODUCT USED FOR UNKNOWN INDICATION

REACTIONS (1)
  - Nasopharyngitis [Recovered/Resolved]
